FAERS Safety Report 20618098 (Version 2)
Quarter: 2022Q2

REPORT INFORMATION
  Report Type: Report from Study
  Country: US (occurrence: US)
  Receive Date: 20220321
  Receipt Date: 20220401
  Transmission Date: 20220721
  Serious: No
  Sender: FDA-Public Use
  Company Number: US-BoehringerIngelheim-2022-BI-160517

PATIENT
  Age: 54 Year
  Sex: Male

DRUGS (1)
  1. OFEV [Suspect]
     Active Substance: NINTEDANIB
     Indication: Idiopathic pulmonary fibrosis
     Route: 048
     Dates: start: 20220307

REACTIONS (3)
  - Hot flush [Recovering/Resolving]
  - Constipation [Not Recovered/Not Resolved]
  - Fatigue [Unknown]

NARRATIVE: CASE EVENT DATE: 20220301
